FAERS Safety Report 8187083-0 (Version None)
Quarter: 2012Q1

REPORT INFORMATION
  Report Type: 
  Country: None (occurrence: None)
  Receive Date: 20120306
  Receipt Date: 20120229
  Transmission Date: 20120608
  Serious: Yes (Other)
  Sender: FDA-Public Use
  Company Number: JP-PFIZER INC-2012040177

PATIENT
  Age: 18 Year
  Sex: Female

DRUGS (62)
  1. OLANZAPINE [Suspect]
     Indication: FEELING ABNORMAL
  2. OLANZAPINE [Suspect]
     Indication: ANXIETY
  3. ZOLPIDEM TARTRATE [Suspect]
     Indication: SELF INJURIOUS BEHAVIOUR
  4. BROTIZOLAM [Suspect]
     Indication: DEPRESSION
     Dosage: 0.25 MG, UNK
  5. BROMAZEPAM [Suspect]
     Indication: INSOMNIA
  6. MOSAPRIDE [Suspect]
     Indication: FEELING ABNORMAL
  7. MOSAPRIDE [Suspect]
     Indication: INSOMNIA
  8. LORAZEPAM [Suspect]
     Indication: FEELING ABNORMAL
  9. LORAZEPAM [Suspect]
     Indication: FRUSTRATION
  10. LORAZEPAM [Suspect]
     Indication: SELF INJURIOUS BEHAVIOUR
  11. RISPERIDONE [Suspect]
     Indication: FEELING ABNORMAL
  12. QUETIAPINE FUMARATE [Suspect]
     Indication: FRUSTRATION
  13. OLANZAPINE [Suspect]
     Indication: FRUSTRATION
  14. ZOLPIDEM TARTRATE [Suspect]
     Indication: DEPRESSION
     Dosage: 10 MG, UNK
  15. ZOLPIDEM TARTRATE [Suspect]
     Indication: ANXIETY
  16. BROTIZOLAM [Suspect]
     Indication: FRUSTRATION
  17. FLUNITRAZEPAM [Suspect]
     Indication: DEPRESSION
     Dosage: 1 MG, UNK
  18. BROMAZEPAM [Suspect]
     Indication: FRUSTRATION
  19. MOSAPRIDE [Suspect]
     Indication: SELF INJURIOUS BEHAVIOUR
  20. SERTRALINE HYDROCHLORIDE [Suspect]
     Indication: INSOMNIA
  21. QUETIAPINE FUMARATE [Suspect]
     Indication: INSOMNIA
  22. QUETIAPINE FUMARATE [Suspect]
     Indication: SELF INJURIOUS BEHAVIOUR
  23. OLANZAPINE [Suspect]
     Indication: INSOMNIA
  24. BROTIZOLAM [Suspect]
     Indication: FEELING ABNORMAL
  25. FLUNITRAZEPAM [Suspect]
     Indication: FEELING ABNORMAL
  26. BROMAZEPAM [Suspect]
     Indication: DEPRESSION
     Dosage: 6 MG, UNK
  27. MOSAPRIDE [Suspect]
     Indication: ANXIETY
  28. PURSENNIDE [Suspect]
     Indication: CONSTIPATION
     Dosage: 2 DF, 1X/DAY
  29. FLUNITRAZEPAM [Suspect]
     Indication: FRUSTRATION
  30. MOSAPRIDE [Suspect]
     Indication: DEPRESSION
     Dosage: 15 MG, 3X/DAY
  31. MOSAPRIDE [Suspect]
     Indication: FRUSTRATION
  32. RISPERIDONE [Suspect]
     Indication: SELF INJURIOUS BEHAVIOUR
  33. BROTIZOLAM [Suspect]
     Indication: INSOMNIA
  34. FLUNITRAZEPAM [Suspect]
     Indication: ANXIETY
  35. BROMAZEPAM [Suspect]
     Indication: FEELING ABNORMAL
  36. SERTRALINE HYDROCHLORIDE [Suspect]
     Indication: SELF INJURIOUS BEHAVIOUR
  37. RISPERIDONE [Suspect]
     Indication: FRUSTRATION
  38. OLANZAPINE [Suspect]
     Indication: DEPRESSION
     Dosage: 5 MG, 1X/DAY
  39. BROTIZOLAM [Suspect]
     Indication: ANXIETY
  40. FLUNITRAZEPAM [Suspect]
     Indication: INSOMNIA
  41. FLUNITRAZEPAM [Suspect]
     Indication: SELF INJURIOUS BEHAVIOUR
  42. BROMAZEPAM [Suspect]
     Indication: ANXIETY
  43. BROMAZEPAM [Suspect]
     Indication: SELF INJURIOUS BEHAVIOUR
  44. SERTRALINE HYDROCHLORIDE [Suspect]
     Indication: FEELING ABNORMAL
  45. LORAZEPAM [Suspect]
     Indication: ANXIETY
  46. RISPERIDONE [Suspect]
     Indication: ANXIETY
  47. QUETIAPINE FUMARATE [Suspect]
     Indication: DEPRESSION
     Dosage: 75 MG, 3X/DAY
  48. QUETIAPINE FUMARATE [Suspect]
     Indication: FEELING ABNORMAL
  49. ZOLPIDEM TARTRATE [Suspect]
     Indication: FRUSTRATION
  50. SERTRALINE HYDROCHLORIDE [Suspect]
     Indication: DEPRESSION
     Dosage: 50 MG, 2X/DAY
  51. SERTRALINE HYDROCHLORIDE [Suspect]
     Indication: ANXIETY
  52. SERTRALINE HYDROCHLORIDE [Suspect]
     Indication: FRUSTRATION
  53. LORAZEPAM [Suspect]
     Indication: DEPRESSION
     Dosage: 1.5 MG, 3X/DAY
  54. LORAZEPAM [Suspect]
     Indication: INSOMNIA
  55. RISPERIDONE [Suspect]
     Indication: DEPRESSION
     Dosage: 1 MG, 1X/DAY
  56. RISPERIDONE [Suspect]
     Indication: INSOMNIA
  57. QUETIAPINE FUMARATE [Suspect]
     Indication: ANXIETY
  58. OLANZAPINE [Suspect]
     Indication: SELF INJURIOUS BEHAVIOUR
  59. ZOLPIDEM TARTRATE [Suspect]
     Indication: FEELING ABNORMAL
  60. ZOLPIDEM TARTRATE [Suspect]
     Indication: INSOMNIA
  61. BROTIZOLAM [Suspect]
     Indication: SELF INJURIOUS BEHAVIOUR
  62. PURSENNIDE [Suspect]
     Indication: FLATULENCE

REACTIONS (6)
  - CONSTIPATION [None]
  - FLATULENCE [None]
  - THERAPEUTIC RESPONSE DECREASED [None]
  - WEIGHT INCREASED [None]
  - OVERDOSE [None]
  - HYPERPHAGIA [None]
